FAERS Safety Report 16869831 (Version 3)
Quarter: 2020Q1

REPORT INFORMATION
  Report Type: Spontaneous
  Country: US (occurrence: US)
  Receive Date: 20190930
  Receipt Date: 20200124
  Transmission Date: 20200409
  Serious: Yes (Hospitalization, Other)
  Sender: FDA-Public Use
  Company Number: US-SA-2019SA267246

PATIENT
  Age: 72 Year
  Sex: Female

DRUGS (19)
  1. REPATHA [Suspect]
     Active Substance: EVOLOCUMAB
  2. ASPIRINE [Concomitant]
     Active Substance: ASPIRIN
  3. BRILINTA [Concomitant]
     Active Substance: TICAGRELOR
  4. PRILOCAINE [Concomitant]
     Active Substance: PRILOCAINE
  5. LEVOTHYROXIN [Concomitant]
     Active Substance: LEVOTHYROXINE
  6. BACITRACIN. [Concomitant]
     Active Substance: BACITRACIN
  7. BETAMETHASONE DIPROPIONATE AUGMENTED [Concomitant]
     Active Substance: BETAMETHASONE DIPROPIONATE
  8. DUPIXENT [Suspect]
     Active Substance: DUPILUMAB
     Indication: DERMATITIS ATOPIC
     Dosage: 300 MG, QOW
     Route: 058
     Dates: start: 20190719
  9. TACROLIMUS [TACROLIMUS MONOHYDRATE] [Concomitant]
  10. POLYMYXIN [Concomitant]
     Active Substance: POLYMYXIN
  11. FINASTERIDE. [Concomitant]
     Active Substance: FINASTERIDE
  12. CYANOCOBALAMIN. [Concomitant]
     Active Substance: CYANOCOBALAMIN
  13. EPINEPHRINE. [Concomitant]
     Active Substance: EPINEPHRINE
  14. MOXIFLOXACIN. [Concomitant]
     Active Substance: MOXIFLOXACIN
  15. AMOXICILLIN. [Concomitant]
     Active Substance: AMOXICILLIN
  16. DUREZOL [Concomitant]
     Active Substance: DIFLUPREDNATE
  17. PROLENSA [Concomitant]
     Active Substance: BROMFENAC SODIUM
  18. LIDOCAIN [LIDOCAINE] [Concomitant]
  19. ALPRAZOLAM. [Concomitant]
     Active Substance: ALPRAZOLAM

REACTIONS (3)
  - Injection site pain [Not Recovered/Not Resolved]
  - Myocardial infarction [Recovered/Resolved]
  - Alopecia [Not Recovered/Not Resolved]

NARRATIVE: CASE EVENT DATE: 20200111
